FAERS Safety Report 7609170-5 (Version None)
Quarter: 2011Q3

REPORT INFORMATION
  Report Type: 
  Country: None (occurrence: None)
  Receive Date: 20110714
  Receipt Date: 20110706
  Transmission Date: 20111222
  Serious: Yes (Hospitalization, Other)
  Sender: FDA-Public Use
  Company Number: US-PFIZER INC-2011111816

PATIENT
  Sex: Female

DRUGS (12)
  1. NEURONTIN [Concomitant]
     Dosage: 900 MG, EVERY BEDTIME
  2. CLONAZEPAM [Concomitant]
     Dosage: 0.5 MG, 1X/DAY AT BEDTIME
  3. SUTENT [Suspect]
     Dosage: 25 MG, 1X/DAY, 28 DAYS EVERY 42 DAYS
     Route: 048
     Dates: start: 20110607, end: 20110617
  4. PERCOCET [Concomitant]
     Dosage: UNK
  5. SUTENT [Suspect]
     Indication: METASTATIC RENAL CELL CARCINOMA
     Dosage: 50 MG, 1X/DAY (28DAILY Q 42 DAYS)
     Route: 048
     Dates: start: 20110314, end: 20110412
  6. TESSALON [Concomitant]
     Dosage: 200 MG, AS NEEDED
  7. ZANTAC [Concomitant]
     Dosage: 150 MG, 2X/DAY
     Route: 048
  8. NORVASC [Concomitant]
     Dosage: 10 MG, 1X/DAY
  9. ACIPHEX [Concomitant]
     Dosage: 20 MG, 1X/DAY
  10. SUTENT [Suspect]
     Dosage: 37.5 MG, 1X/DAY
     Route: 048
     Dates: start: 20110427, end: 20110517
  11. SYNTHROID [Concomitant]
     Dosage: 75 UG, UNK
  12. HYZAAR [Concomitant]
     Dosage: 50/12.5MG DAILY

REACTIONS (6)
  - DIVERTICULITIS [None]
  - DEHYDRATION [None]
  - NAUSEA [None]
  - MUCOSAL INFLAMMATION [None]
  - WEIGHT DECREASED [None]
  - DIARRHOEA [None]
